FAERS Safety Report 9812255 (Version 1)
Quarter: 2014Q1

REPORT INFORMATION
  Report Type: Report from Study
  Country: US (occurrence: US)
  Receive Date: 20140113
  Receipt Date: 20140113
  Transmission Date: 20141002
  Serious: Yes (Other)
  Sender: FDA-Public Use
  Company Number: US-ROCHE-1329296

PATIENT
  Sex: Male
  Weight: 69.6 kg

DRUGS (1)
  1. NUTROPIN AQ [Suspect]
     Indication: DWARFISM
     Dosage: EVERY WEEK IN NIGHT
     Route: 058
     Dates: start: 20110221

REACTIONS (5)
  - Trigger finger [Unknown]
  - Abdominal pain [Unknown]
  - Flatulence [Unknown]
  - Astigmatism [Unknown]
  - Gynaecomastia [Unknown]
